FAERS Safety Report 14336488 (Version 1)
Quarter: 2017Q4

REPORT INFORMATION
  Report Type: Report from Study
  Country: CA (occurrence: CA)
  Receive Date: 20171229
  Receipt Date: 20171229
  Transmission Date: 20180321
  Serious: Yes (Other)
  Sender: FDA-Public Use
  Company Number: CA-PFIZER INC-2017550974

PATIENT
  Age: 65 Year

DRUGS (2)
  1. GEMCITABINE HYDROCHLORIDE. [Suspect]
     Active Substance: GEMCITABINE HYDROCHLORIDE
     Indication: METASTATIC RENAL CELL CARCINOMA
     Dosage: 600 MG/M2, CYCLIC (OVER 30 MINUTES ON DAYS 1, 8,AND 15)
     Route: 042
  2. 5-FLUOROURACIL BIOSYN [Suspect]
     Active Substance: FLUOROURACIL
     Indication: METASTATIC RENAL CELL CARCINOMA
     Dosage: 150 MG/M2/D, CYCLIC (DAYS 1 TO 21 OF A 28 DAY CYCLE)
     Route: 042

REACTIONS (1)
  - Duodenal ulcer [Unknown]
